FAERS Safety Report 13616508 (Version 1)
Quarter: 2017Q2

REPORT INFORMATION
  Report Type: Spontaneous
  Country: US (occurrence: US)
  Receive Date: 20170606
  Receipt Date: 20170606
  Transmission Date: 20170830
  Serious: No
  Sender: FDA-Public Use
  Company Number: US-SA-2016SA085019

PATIENT
  Age: 56 Year
  Sex: Female

DRUGS (2)
  1. LANTUS SOLOSTAR [Suspect]
     Active Substance: INSULIN GLARGINE
     Indication: TYPE 2 DIABETES MELLITUS
     Dosage: 65 AND 65 UNITS MORNING AND?EVENING DOSE:65 UNIT(S)
     Route: 065
  2. SOLOSTAR [Suspect]
     Active Substance: DEVICE
     Indication: TYPE 2 DIABETES MELLITUS

REACTIONS (7)
  - Blood glucose increased [Recovering/Resolving]
  - Product use issue [Unknown]
  - Fatigue [Unknown]
  - Visual impairment [Unknown]
  - Incorrect product storage [Unknown]
  - Device issue [Unknown]
  - Somnolence [Unknown]
